FAERS Safety Report 5475242-7 (Version None)
Quarter: 2007Q4

REPORT INFORMATION
  Report Type: 
  Country: None (occurrence: None)
  Receive Date: 20071002
  Receipt Date: 20070927
  Transmission Date: 20080405
  Serious: Yes (Other)
  Sender: FDA-Public Use
  Company Number: US-GENENTECH-246470

PATIENT
  Sex: Female
  Weight: 56.689 kg

DRUGS (5)
  1. XOLAIR [Suspect]
     Indication: ASTHMA
     Dosage: 150 MG, Q2W
     Route: 058
     Dates: end: 20070301
  2. XOLAIR [Suspect]
     Dosage: UNK, 2/MONTH
     Dates: start: 20070301
  3. ZYRTEC [Concomitant]
     Indication: DRUG USE FOR UNKNOWN INDICATION
     Dosage: 10 MG, PRN
  4. FLOVENT [Concomitant]
     Indication: ASTHMA
     Dosage: 220 A?G, BID
  5. XOPENEX [Concomitant]
     Indication: ASTHMA
     Dosage: UNK, PRN

REACTIONS (3)
  - ASTHENIA [None]
  - BLOOD PRESSURE FLUCTUATION [None]
  - DYSPNOEA [None]
